FAERS Safety Report 19105559 (Version 3)
Quarter: 2021Q3

REPORT INFORMATION
  Report Type: Report from Study
  Country: US (occurrence: US)
  Receive Date: 20210408
  Receipt Date: 20210707
  Transmission Date: 20211014
  Serious: No
  Sender: FDA-Public Use
  Company Number: NVSC2021US075775

PATIENT
  Sex: Female

DRUGS (1)
  1. COSENTYX [Suspect]
     Active Substance: SECUKINUMAB
     Indication: PRODUCT USED FOR UNKNOWN INDICATION
     Route: 065

REACTIONS (6)
  - Disease recurrence [Unknown]
  - Pain in extremity [Unknown]
  - Pruritus [Unknown]
  - Burning sensation [Unknown]
  - Dermatitis contact [Unknown]
  - Inappropriate schedule of product administration [Unknown]
